FAERS Safety Report 4649060-3 (Version None)
Quarter: 2005Q2

REPORT INFORMATION
  Report Type: 
  Country: None (occurrence: None)
  Receive Date: 20050427
  Receipt Date: 20050301
  Transmission Date: 20051028
  Serious: Yes (Hospitalization)
  Sender: FDA-Public Use
  Company Number: 2005BI005378

PATIENT
  Sex: Male

DRUGS (5)
  1. AVONEX [Suspect]
     Indication: PROGRESSIVE MULTIPLE SCLEROSIS
     Dosage: IM
     Route: 030
     Dates: start: 20040223
  2. NATALIZUMAB [Suspect]
     Indication: PROGRESSIVE MULTIPLE SCLEROSIS
     Dosage: 300 MG; QM; IV
     Route: 042
     Dates: start: 20050118, end: 20050101
  3. BACLOFEN [Concomitant]
  4. NAPROXEN [Concomitant]
  5. DITROPAN [Concomitant]

REACTIONS (7)
  - DECREASED ACTIVITY [None]
  - DYSKINESIA [None]
  - GENERAL PHYSICAL HEALTH DETERIORATION [None]
  - IMMUNE SYSTEM DISORDER [None]
  - MUSCLE SPASMS [None]
  - TREMOR [None]
  - VISUAL ACUITY REDUCED [None]
